FAERS Safety Report 20850758 (Version 1)
Quarter: 2022Q2

REPORT INFORMATION
  Report Type: Spontaneous
  Country: US (occurrence: None)
  Receive Date: 20220518
  Receipt Date: 20220518
  Transmission Date: 20220720
  Serious: No
  Sender: FDA-Public Use
  Company Number: None

PATIENT

DRUGS (1)
  1. XERAVA [Suspect]
     Active Substance: ERAVACYCLINE DIHYDROCHLORIDE
     Route: 041

REACTIONS (2)
  - Product preparation error [None]
  - Intercepted product dispensing error [None]

NARRATIVE: CASE EVENT DATE: 20220506
